FAERS Safety Report 6210932-X (Version None)
Quarter: 2009Q2

REPORT INFORMATION
  Report Type: 
  Country: None (occurrence: None)
  Receive Date: 20090601
  Receipt Date: 20090521
  Transmission Date: 20091009
  Serious: Yes (Other)
  Sender: FDA-Public Use
  Company Number: US-GILEAD-2009-0021637

PATIENT
  Sex: Female
  Weight: 54.752 kg

DRUGS (4)
  1. VIREAD [Suspect]
     Indication: HIV INFECTION
     Route: 048
     Dates: start: 20020613, end: 20090408
  2. EPIVIR [Concomitant]
     Indication: HIV INFECTION
     Dates: start: 20020613
  3. SUSTIVA [Concomitant]
     Indication: HIV INFECTION
     Dates: start: 20020613
  4. KALETRA [Concomitant]
     Indication: HIV INFECTION
     Dates: start: 20020613

REACTIONS (6)
  - BONE PAIN [None]
  - FANCONI SYNDROME ACQUIRED [None]
  - HYPOPHOSPHATAEMIA [None]
  - MUSCULOSKELETAL DISORDER [None]
  - OSTEOMALACIA [None]
  - VITAMIN D DECREASED [None]
